FAERS Safety Report 21464480 (Version 2)
Quarter: 2022Q4

REPORT INFORMATION
  Report Type: Report from Study
  Country: GR (occurrence: GR)
  Receive Date: 20221017
  Receipt Date: 20221027
  Transmission Date: 20230113
  Serious: Yes (Hospitalization)
  Sender: FDA-Public Use
  Company Number: GR-ABBVIE-4157991

PATIENT
  Age: 74 Year
  Sex: Male
  Weight: 80 kg

DRUGS (2)
  1. CARBIDOPA\LEVODOPA [Suspect]
     Active Substance: CARBIDOPA\LEVODOPA
     Indication: Parkinson^s disease
     Dosage: MORNING DOSE: 5 ML; CONTINUOUS RATE: 3 ML/H (DAY), 1.5 ML/H (NIGHT); EXTRA DOSE: 2 ML (24H ADMIN)...
     Route: 050
     Dates: start: 20220608
  2. CARBIDOPA\LEVODOPA [Suspect]
     Active Substance: CARBIDOPA\LEVODOPA
     Dosage: MORNING DOSE: 5 ML; CONTINUOUS RATE: 3 ML/H (DAY), 1.5 ML/H (NIGHT); EXTRA DOSE: 2 ML (24H ADMIN)...
     Route: 050

REACTIONS (3)
  - Coronavirus infection [Not Recovered/Not Resolved]
  - Productive cough [Not Recovered/Not Resolved]
  - Oxygen saturation decreased [Not Recovered/Not Resolved]

NARRATIVE: CASE EVENT DATE: 20220101
